FAERS Safety Report 6128763-8 (Version None)
Quarter: 2009Q1

REPORT INFORMATION
  Report Type: 
  Country: None (occurrence: None)
  Receive Date: 20090323
  Receipt Date: 20090318
  Transmission Date: 20090719
  Serious: Yes (Hospitalization)
  Sender: FDA-Public Use
  Company Number: US-GILEAD-2009-0020562

PATIENT
  Sex: Male

DRUGS (10)
  1. LETAIRIS [Suspect]
     Indication: PULMONARY ARTERIAL HYPERTENSION
     Route: 048
     Dates: start: 20090203, end: 20090213
  2. LASIX [Concomitant]
  3. ROXANOL [Concomitant]
  4. PREDNISONE [Concomitant]
  5. CENTRUM SILVER [Concomitant]
  6. CALTRATE +D [Concomitant]
  7. FLEXERIL [Concomitant]
  8. PROTONIX [Concomitant]
  9. XANAX [Concomitant]
  10. K-DUR [Concomitant]

REACTIONS (6)
  - DYSPNOEA [None]
  - FALL [None]
  - HIP FRACTURE [None]
  - MENTAL IMPAIRMENT [None]
  - MYOCARDIAL INFARCTION [None]
  - UNRESPONSIVE TO STIMULI [None]
